FAERS Safety Report 25759106 (Version 1)
Quarter: 2025Q3

REPORT INFORMATION
  Report Type: Spontaneous
  Country: US (occurrence: US)
  Receive Date: 20250904
  Receipt Date: 20250904
  Transmission Date: 20251021
  Serious: Yes (Other)
  Sender: RADIUS PHARM
  Company Number: US-RADIUS HEALTH INC.-US-RADIUS-25053034

PATIENT
  Sex: Female

DRUGS (1)
  1. TYMLOS [Suspect]
     Active Substance: ABALOPARATIDE
     Indication: Spinal fracture
     Dosage: 80 MICROGRAM, QD
     Route: 058

REACTIONS (3)
  - Tooth infection [Unknown]
  - Tooth extraction [Unknown]
  - Product prescribing issue [Unknown]
